FAERS Safety Report 5559125-X (Version None)
Quarter: 2007Q4

REPORT INFORMATION
  Report Type: 
  Country: None (occurrence: None)
  Receive Date: 20071214
  Receipt Date: 20070919
  Transmission Date: 20080405
  Serious: No
  Sender: FDA-Public Use
  Company Number: US-ABBOTT-07P-163-0417613-00

PATIENT
  Sex: Female
  Weight: 72.64 kg

DRUGS (10)
  1. HUMIRA [Suspect]
     Indication: RHEUMATOID ARTHRITIS
     Route: 058
     Dates: start: 20070707
  2. ALENDRONATE SODIUM [Concomitant]
     Indication: OSTEOPENIA
     Route: 048
  3. TYLOX [Concomitant]
     Indication: PAIN
     Route: 048
  4. ESOMEPRAZOLE MAGNESIUM [Concomitant]
     Indication: GASTROOESOPHAGEAL REFLUX DISEASE
     Route: 048
  5. METHOTREXATE [Concomitant]
     Indication: RHEUMATOID ARTHRITIS
     Route: 048
  6. MISOPROSTOL [Concomitant]
     Indication: GASTRIC DISORDER
     Route: 048
  7. FOLIC ACID [Concomitant]
     Indication: RHEUMATOID ARTHRITIS
     Route: 048
  8. DICYCLOVERINE [Concomitant]
     Indication: GASTRIC DISORDER
     Route: 048
  9. SALSALATE [Concomitant]
     Indication: INFLAMMATION
     Route: 048
  10. SALBUTAMOL SULFATE [Concomitant]
     Indication: ASTHMA
     Route: 055

REACTIONS (3)
  - DRUG INEFFECTIVE [None]
  - PAIN IN EXTREMITY [None]
  - PARAESTHESIA [None]
